FAERS Safety Report 6859990-X (Version None)
Quarter: 2010Q3

REPORT INFORMATION
  Report Type: 
  Country: None (occurrence: None)
  Receive Date: 20100720
  Receipt Date: 20100709
  Transmission Date: 20110219
  Serious: Yes (Death, Life-Threatening, Hospitalization)
  Sender: FDA-Public Use
  Company Number: NL-PFIZER INC-2008013916

PATIENT
  Age: 46 Year
  Sex: Female
  Weight: 71 kg

DRUGS (6)
  1. SUNITINIB MALATE [Suspect]
     Indication: NON-SMALL CELL LUNG CANCER
     Dosage: 37.5 MG, 1X/DAY
     Route: 048
     Dates: start: 20071015, end: 20080211
  2. *ERLOTINIB [Suspect]
     Indication: NON-SMALL CELL LUNG CANCER
     Dosage: 150 MG, 1X/DAY
     Route: 048
     Dates: start: 20071015, end: 20080211
  3. MINOCYCLINE [Concomitant]
     Dates: start: 20071220
  4. METOCLOPRAMIDE [Concomitant]
     Dates: start: 20080204
  5. PANTOZOL [Concomitant]
     Dates: start: 20080204
  6. LOPERAMIDE [Concomitant]
     Dates: start: 20080204

REACTIONS (9)
  - BLOOD ALBUMIN DECREASED [None]
  - BLOOD BILIRUBIN DECREASED [None]
  - BLOOD CALCIUM DECREASED [None]
  - BLOOD MAGNESIUM DECREASED [None]
  - CALCIUM IONISED DECREASED [None]
  - DEHYDRATION [None]
  - DIARRHOEA [None]
  - HYPOCALCAEMIA [None]
  - PANCREATITIS [None]
